FAERS Safety Report 24017908 (Version 3)
Quarter: 2024Q3

REPORT INFORMATION
  Report Type: Other
  Country: HR (occurrence: HR)
  Receive Date: 20240627
  Receipt Date: 20240920
  Transmission Date: 20241017
  Serious: Yes (Other)
  Sender: Steriscience PTE
  Company Number: None

PATIENT
  Age: 63 Year
  Sex: Male

DRUGS (12)
  1. VANCOMYCIN [Suspect]
     Active Substance: VANCOMYCIN
     Indication: Central nervous system infection
     Dosage: UNK UNK, UNKNOWN FREQ;
     Route: 065
  2. VANCOMYCIN [Suspect]
     Active Substance: VANCOMYCIN
     Indication: Central nervous system infection
     Dosage: UNK, CONCENTRATE FOR SOLUTION FOR INFUSION
     Route: 065
  3. VANCOMYCIN [Suspect]
     Active Substance: VANCOMYCIN
     Dosage: UNK
     Route: 065
  4. MEROPENEM [Suspect]
     Active Substance: MEROPENEM
     Indication: Central nervous system infection
     Dosage: UNK UNK, UNKNOWN FREQ; POWDER FOR SOLUTION FOR INFUSION
     Route: 065
  5. MEROPENEM [Suspect]
     Active Substance: MEROPENEM
     Indication: Central nervous system infection
     Dosage: UNKUNK UNK, UNKNOWN FREQ; POWDER FOR SOLUTION FOR INFUSION
     Route: 065
  6. MEROPENEM [Suspect]
     Active Substance: MEROPENEM
     Dosage: UNK
     Route: 065
  7. CRESEMBA [Suspect]
     Active Substance: ISAVUCONAZONIUM SULFATE
     Indication: Fungal infection
     Dosage: 200 MG, 1X/DAY; CAPSULE
     Route: 042
  8. CRESEMBA [Suspect]
     Active Substance: ISAVUCONAZONIUM SULFATE
     Dosage: 200 MG, 3X/DAY
     Route: 042
  9. CRESEMBA [Suspect]
     Active Substance: ISAVUCONAZONIUM SULFATE
     Dosage: 200 MG, TID; CAPSULE
     Route: 042
  10. CRESEMBA [Suspect]
     Active Substance: ISAVUCONAZONIUM SULFATE
     Dosage: 200 MG, 1X/DAY
     Route: 042
  11. AMPHOTERICIN B [Suspect]
     Active Substance: AMPHOTERICIN B
     Indication: Central nervous system infection
     Dosage: UNK, INJECTION
     Route: 065
  12. AMPHOTERICIN B [Suspect]
     Active Substance: AMPHOTERICIN B
     Indication: Central nervous system infection

REACTIONS (7)
  - Central nervous system lesion [Unknown]
  - Somnolence [Unknown]
  - Ataxia [Unknown]
  - Dysphagia [Unknown]
  - Pyrexia [Unknown]
  - Vertigo [Unknown]
  - Off label use [Unknown]
